FAERS Safety Report 5172373-6 (Version None)
Quarter: 2006Q4

REPORT INFORMATION
  Report Type: 
  Country: None (occurrence: None)
  Receive Date: 20061213
  Receipt Date: 20061103
  Transmission Date: 20070319
  Serious: Yes (Life-Threatening)
  Sender: FDA-Public Use
  Company Number: US-MERCK-0611USA01636

PATIENT
  Age: 60 Year
  Sex: Female

DRUGS (6)
  1. ZETIA [Suspect]
     Indication: BLOOD CHOLESTEROL INCREASED
     Route: 048
     Dates: start: 20041025, end: 20060216
  2. ZETIA [Suspect]
     Indication: HYPERCHOLESTEROLAEMIA
     Route: 048
     Dates: start: 20041025, end: 20060216
  3. HYDROCHLOROTHIAZIDE AND TRIAMTERENE [Concomitant]
     Indication: HYPERTENSION
     Route: 048
  4. SYNTHROID [Concomitant]
     Indication: HYPOTHYROIDISM
     Route: 048
  5. PREMARIN [Concomitant]
     Indication: HORMONE REPLACEMENT THERAPY
     Route: 048
     Dates: start: 19850101
  6. INDERAL [Concomitant]
     Indication: HYPERTENSION
     Route: 048
     Dates: start: 19800101

REACTIONS (2)
  - DIVERTICULUM [None]
  - HEPATOMEGALY [None]
